FAERS Safety Report 10162150 (Version 1)
Quarter: 2014Q2

REPORT INFORMATION
  Report Type: Spontaneous
  Country: US (occurrence: US)
  Receive Date: 20140509
  Receipt Date: 20140509
  Transmission Date: 20141212
  Serious: Yes (Other)
  Sender: FDA-Public Use
  Company Number: US-BAYER-2014-065244

PATIENT
  Age: 43 Year
  Sex: Female
  Weight: 86.17 kg

DRUGS (4)
  1. BAYER ASPIRIN REGIMEN ADULT LOW STRENGTH [Suspect]
     Dosage: 81 MG, QD
     Route: 048
  2. FLOVENT HFA [Concomitant]
     Indication: ASTHMA
     Dosage: 220 ?G, BID
  3. PROAIR HFA [Concomitant]
     Indication: ASTHMA
     Dosage: UNK UNK, PRN
  4. LEVOTHYROXINE SODIUM [Concomitant]
     Indication: HYPOTHYROIDISM

REACTIONS (2)
  - Blood disorder [None]
  - Haemorrhage [None]
